FAERS Safety Report 12271680 (Version 1)
Quarter: 2016Q2

REPORT INFORMATION
  Report Type: Spontaneous
  Country: CA (occurrence: None)
  Receive Date: 20160414
  Receipt Date: 20160414
  Transmission Date: 20160815
  Serious: Yes (Hospitalization)
  Sender: FDA-Public Use
  Company Number: None

PATIENT
  Age: 6 Year
  Sex: Male
  Weight: 29.6 kg

DRUGS (3)
  1. DACTINOMYCIN [Suspect]
     Active Substance: DACTINOMYCIN
     Dates: end: 20120821
  2. VINCRISTINE SULFATE. [Suspect]
     Active Substance: VINCRISTINE SULFATE
     Dates: end: 20120821
  3. CYCLOPHOSPHAMIDE. [Suspect]
     Active Substance: CYCLOPHOSPHAMIDE
     Dates: end: 20120821

REACTIONS (12)
  - Blood iron decreased [None]
  - Lymphopenia [None]
  - Rhinorrhoea [None]
  - Fatigue [None]
  - Asthenia [None]
  - Diarrhoea [None]
  - Eosinophilia [None]
  - Pain [None]
  - Pancytopenia [None]
  - Cough [None]
  - Pyrexia [None]
  - Discomfort [None]

NARRATIVE: CASE EVENT DATE: 20160309
